FAERS Safety Report 6731885-1 (Version None)
Quarter: 2010Q2

REPORT INFORMATION
  Report Type: 
  Country: None (occurrence: None)
  Receive Date: 20100517
  Receipt Date: 20100504
  Transmission Date: 20101027
  Serious: Yes (Other)
  Sender: FDA-Public Use
  Company Number: 2010AP000930

PATIENT

DRUGS (1)
  1. CIPRO [Suspect]

REACTIONS (3)
  - GANGRENE [None]
  - HAEMORRHAGE [None]
  - VASCULITIS [None]
